FAERS Safety Report 6689308-7 (Version None)
Quarter: 2010Q2

REPORT INFORMATION
  Report Type: 
  Country: None (occurrence: None)
  Receive Date: 20100416
  Receipt Date: 20100402
  Transmission Date: 20101027
  Serious: Yes (Other)
  Sender: FDA-Public Use
  Company Number: TRP_06900_2010

PATIENT
  Sex: Male

DRUGS (11)
  1. INFERGEN [Suspect]
     Indication: HEPATITIS C
     Dosage: (15 UG QD SUBCUTANEOUS), ( 4 UG QD SUBCUTANEOUS)
     Route: 058
     Dates: start: 20100201, end: 20100101
  2. INFERGEN [Suspect]
     Indication: HEPATITIS C
     Dosage: (15 UG QD SUBCUTANEOUS), ( 4 UG QD SUBCUTANEOUS)
     Route: 058
     Dates: start: 20100327
  3. RIBAVIRIN [Suspect]
     Indication: HEPATITIS C
     Dosage: (600 MG BID ORAL), (600 MG BID ORAL)
     Route: 048
     Dates: start: 20100201, end: 20100101
  4. RIBAVIRIN [Suspect]
     Indication: HEPATITIS C
     Dosage: (600 MG BID ORAL), (600 MG BID ORAL)
     Route: 048
     Dates: start: 20100327
  5. LISINOPRIL [Concomitant]
  6. OXYBUTYNIN CHLORIDE [Concomitant]
  7. DICYCLOMINE [Concomitant]
  8. LORAZEPAM [Concomitant]
  9. HYDROXYZINE [Concomitant]
  10. PREVACID [Concomitant]
  11. DARVON 65 [Concomitant]

REACTIONS (11)
  - AGGRESSION [None]
  - ARTHRALGIA [None]
  - BLADDER OPERATION [None]
  - EYE PRURITUS [None]
  - GAIT DISTURBANCE [None]
  - HEADACHE [None]
  - MYALGIA [None]
  - NAUSEA [None]
  - PERSONALITY DISORDER [None]
  - SCREAMING [None]
  - TINNITUS [None]
